FAERS Safety Report 5754495-1 (Version None)
Quarter: 2008Q2

REPORT INFORMATION
  Report Type: 
  Country: None (occurrence: None)
  Receive Date: 20080530
  Receipt Date: 20080327
  Transmission Date: 20081010
  Serious: No
  Sender: FDA-Public Use
  Company Number: US-BOEHRINGER INGELHEIM GMBH, GERMANY-2008-BP-04745BP

PATIENT
  Sex: Female
  Weight: 79 kg

DRUGS (2)
  1. COMBIVENT [Suspect]
     Indication: ASTHMA
  2. ATROVENT HFA [Suspect]
     Indication: ASTHMA

REACTIONS (5)
  - CHEST PAIN [None]
  - DYSPNOEA [None]
  - HYPERTENSION [None]
  - MULTIPLE ALLERGIES [None]
  - PARADOXICAL DRUG REACTION [None]
